FAERS Safety Report 4680854-4 (Version None)
Quarter: 2005Q2

REPORT INFORMATION
  Report Type: 
  Country: None (occurrence: None)
  Receive Date: 20050603
  Receipt Date: 20050526
  Transmission Date: 20051028
  Serious: Yes (Hospitalization)
  Sender: FDA-Public Use
  Company Number: PHFR2005GB01972

PATIENT

DRUGS (1)
  1. NEORAL [Suspect]
     Indication: COLITIS ULCERATIVE
     Route: 065

REACTIONS (2)
  - DRUG LEVEL INCREASED [None]
  - JAUNDICE [None]
